FAERS Safety Report 6121375-1 (Version None)
Quarter: 2009Q1

REPORT INFORMATION
  Report Type: 
  Country: None (occurrence: None)
  Receive Date: 20090317
  Receipt Date: 20090310
  Transmission Date: 20090719
  Serious: Yes (Other)
  Sender: FDA-Public Use
  Company Number: US-AVENTIS-200817142US

PATIENT
  Sex: Female

DRUGS (1)
  1. CARAC [Suspect]
     Dosage: DOSE: APPLY NIGHTLY
     Route: 061
     Dates: start: 20080101, end: 20080101

REACTIONS (4)
  - HEADACHE [None]
  - PAIN OF SKIN [None]
  - RASH GENERALISED [None]
  - SWOLLEN TONGUE [None]
